APPROVED DRUG PRODUCT: NYSTATIN
Active Ingredient: NYSTATIN
Strength: 100,000 UNITS/GM
Dosage Form/Route: CREAM;TOPICAL
Application: A207733 | Product #001 | TE Code: AT
Applicant: CROWN LABORATORIES INC
Approved: Sep 26, 2017 | RLD: No | RS: No | Type: RX